FAERS Safety Report 25429153 (Version 1)
Quarter: 2025Q2

REPORT INFORMATION
  Report Type: Spontaneous
  Country: AU (occurrence: AU)
  Receive Date: 20250612
  Receipt Date: 20250612
  Transmission Date: 20250716
  Serious: Yes (Death)
  Sender: PHARMACOSMOS A/S
  Company Number: AU-NEBO-697419

PATIENT
  Age: 95 Year
  Sex: Male

DRUGS (5)
  1. DENOSUMAB [Suspect]
     Active Substance: DENOSUMAB
  2. CHOLECALCIFEROL [Concomitant]
     Active Substance: CHOLECALCIFEROL
  3. CALCIUM CARBONATE [Concomitant]
     Active Substance: CALCIUM CARBONATE
  4. FUROSEMIDE [Concomitant]
     Active Substance: FUROSEMIDE
  5. IRON ISOMALTOSIDE 1000 [Suspect]
     Active Substance: IRON ISOMALTOSIDE 1000
     Indication: Iron deficiency anaemia

REACTIONS (4)
  - Hypophosphataemia [Recovered/Resolved]
  - Sepsis [Fatal]
  - Fracture [Unknown]
  - Hypocalcaemia [Recovered/Resolved]
